FAERS Safety Report 9356037 (Version 1)
Quarter: 2013Q2

REPORT INFORMATION
  Report Type: Report from Study
  Country: US (occurrence: US)
  Receive Date: 20130619
  Receipt Date: 20130619
  Transmission Date: 20140414
  Serious: Yes (Hospitalization, Other)
  Sender: FDA-Public Use
  Company Number: US-UCBSA-088617

PATIENT
  Sex: Male
  Weight: 109 kg

DRUGS (1)
  1. CIMZIA [Suspect]
     Indication: CROHN^S DISEASE
     Dosage: UNKNOWN DOSE

REACTIONS (6)
  - Clostridium difficile infection [Unknown]
  - Crohn^s disease [Unknown]
  - Quality of life decreased [Unknown]
  - Respiratory tract infection [Unknown]
  - Drug ineffective [Unknown]
  - Injection site pain [Unknown]
